FAERS Safety Report 15410484 (Version 3)
Quarter: 2019Q3

REPORT INFORMATION
  Report Type: Report from Study
  Country: None (occurrence: US)
  Receive Date: 20180921
  Receipt Date: 20190902
  Transmission Date: 20191004
  Serious: Yes (Other)
  Sender: FDA-Public Use
  Company Number: US-ABBVIE-17K-163-2077081-00

PATIENT
  Sex: Female

DRUGS (2)
  1. HUMIRA [Suspect]
     Active Substance: ADALIMUMAB
     Indication: RHEUMATOID ARTHRITIS
     Route: 058
  2. HUMIRA [Suspect]
     Active Substance: ADALIMUMAB
     Indication: RHEUMATOID ARTHRITIS
     Dosage: CITRATE FREE
     Route: 058

REACTIONS (13)
  - Arthrodesis [Unknown]
  - Irritable bowel syndrome [Unknown]
  - Amnesia [Unknown]
  - Gastrointestinal bacterial infection [Unknown]
  - Depression [Unknown]
  - Injection site pain [Recovered/Resolved]
  - Fibromyalgia [Unknown]
  - Hypertension [Recovering/Resolving]
  - Colectomy [Unknown]
  - Diabetes mellitus [Recovering/Resolving]
  - Stress [Unknown]
  - Arthralgia [Unknown]
  - Kyphosis [Unknown]
